FAERS Safety Report 10781774 (Version 1)
Quarter: 2015Q1

REPORT INFORMATION
  Report Type: Spontaneous
  Country: BR (occurrence: BR)
  Receive Date: 20150210
  Receipt Date: 20150210
  Transmission Date: 20150721
  Serious: Yes (Other)
  Sender: FDA-Public Use
  Company Number: BR-SA-2015SA009737

PATIENT
  Age: 3 Year
  Sex: Male

DRUGS (4)
  1. ALLEGRA [Suspect]
     Active Substance: FEXOFENADINE HYDROCHLORIDE
     Indication: SINUSITIS
     Route: 048
     Dates: start: 20150106, end: 20150122
  2. ALLEGRA [Suspect]
     Active Substance: FEXOFENADINE HYDROCHLORIDE
     Indication: SINUSITIS
     Dosage: ACCIDENTLY TOOK 60ML MORE
     Route: 048
     Dates: start: 20150122, end: 20150122
  3. ALLEGRA [Suspect]
     Active Substance: FEXOFENADINE HYDROCHLORIDE
     Indication: RHINITIS
     Dosage: ACCIDENTLY TOOK 60ML MORE
     Route: 048
     Dates: start: 20150122, end: 20150122
  4. ALLEGRA [Suspect]
     Active Substance: FEXOFENADINE HYDROCHLORIDE
     Indication: RHINITIS
     Route: 048
     Dates: start: 20150106, end: 20150122

REACTIONS (6)
  - Incorrect dose administered [Unknown]
  - Abdominal pain [Unknown]
  - Somnolence [Unknown]
  - Syncope [Unknown]
  - Nausea [Unknown]
  - Overdose [Unknown]

NARRATIVE: CASE EVENT DATE: 20150122
